FAERS Safety Report 11329149 (Version 2)
Quarter: 2015Q3

REPORT INFORMATION
  Report Type: Spontaneous
  Country: JP (occurrence: JP)
  Receive Date: 20150803
  Receipt Date: 20150807
  Transmission Date: 20151125
  Serious: Yes (Hospitalization, Other)
  Sender: FDA-Public Use
  Company Number: JP-ALVOGEN-2015AL003023

PATIENT
  Age: 53 Year
  Sex: Female

DRUGS (2)
  1. DOXORUBICIN [Suspect]
     Active Substance: DOXORUBICIN
     Indication: OVARIAN EPITHELIAL CANCER
  2. BETAMETHASONE. [Suspect]
     Active Substance: BETAMETHASONE
     Indication: ABDOMINAL PAIN

REACTIONS (1)
  - Pneumocystis jirovecii pneumonia [Recovering/Resolving]
